FAERS Safety Report 15994539 (Version 1)
Quarter: 2019Q1

REPORT INFORMATION
  Report Type: Spontaneous
  Country: US (occurrence: US)
  Receive Date: 20190222
  Receipt Date: 20190222
  Transmission Date: 20190418
  Serious: No
  Sender: FDA-Public Use
  Company Number: US-INSYS THERAPEUTICS, INC-INS201810-000415

PATIENT
  Sex: Male

DRUGS (1)
  1. SUBSYS [Suspect]
     Active Substance: FENTANYL
     Indication: PRODUCT USED FOR UNKNOWN INDICATION
     Route: 060

REACTIONS (9)
  - Stomatitis [Unknown]
  - Yellow skin [Unknown]
  - General physical health deterioration [Unknown]
  - Oral discomfort [Unknown]
  - Dyspnoea [Unknown]
  - Feeling abnormal [Unknown]
  - Haematemesis [Unknown]
  - Ocular icterus [Unknown]
  - Haemoptysis [Unknown]
